FAERS Safety Report 11053846 (Version 2)
Quarter: 2015Q2

REPORT INFORMATION
  Report Type: Report from Study
  Country: US (occurrence: US)
  Receive Date: 20150421
  Receipt Date: 20150429
  Transmission Date: 20150821
  Serious: Yes (Other)
  Sender: FDA-Public Use
  Company Number: US-TAKEDA-2015TUS005060

PATIENT
  Sex: Female

DRUGS (7)
  1. ACTOS [Suspect]
     Active Substance: PIOGLITAZONE HYDROCHLORIDE
     Dosage: UNK
     Route: 048
     Dates: start: 2000, end: 2014
  2. ACTOS [Suspect]
     Active Substance: PIOGLITAZONE HYDROCHLORIDE
     Dosage: UNK
     Route: 048
     Dates: start: 2014
  3. ASPIRIN. [Concomitant]
     Active Substance: ASPIRIN
     Dosage: UNK
     Route: 048
  4. LISINOPRIL. [Concomitant]
     Active Substance: LISINOPRIL
     Indication: HYPERTENSION
     Dosage: UNK
     Route: 048
  5. HYDROCHLOROTHIAZIDE. [Concomitant]
     Active Substance: HYDROCHLOROTHIAZIDE
     Indication: HYPERTENSION
     Dosage: UNK
     Route: 048
  6. SIMVASTATIN. [Concomitant]
     Active Substance: SIMVASTATIN
     Indication: BLOOD CHOLESTEROL INCREASED
     Dosage: UNK
     Route: 048
  7. PIOGLITAZONE [Suspect]
     Active Substance: PIOGLITAZONE
     Dosage: UNK
     Route: 048
     Dates: start: 2014, end: 2014

REACTIONS (4)
  - Blindness [Not Recovered/Not Resolved]
  - Weight increased [Unknown]
  - Retinal haemorrhage [Recovered/Resolved]
  - Adverse event [Unknown]

NARRATIVE: CASE EVENT DATE: 2011
